FAERS Safety Report 8836750 (Version 2)
Quarter: 2012Q4

REPORT INFORMATION
  Report Type: 
  Country: US (occurrence: US)
  Receive Date: 20121012
  Receipt Date: 20121121
  Transmission Date: 20130627
  Serious: Yes (Hospitalization, Other)
  Sender: FDA-Public Use
  Company Number: US-AMGEN-USASP2012064260

PATIENT
  Age: 29 Year
  Sex: Female
  Weight: 73.92 kg

DRUGS (1)
  1. ENBREL [Suspect]
     Indication: RHEUMATOID ARTHRITIS
     Dosage: 50 mg, qwk
     Dates: start: 1998

REACTIONS (2)
  - Labour complication [Recovered/Resolved]
  - Postpartum haemorrhage [Recovered/Resolved]
